FAERS Safety Report 5917991-X (Version None)
Quarter: 2008Q4

REPORT INFORMATION
  Report Type: 
  Country: None (occurrence: None)
  Receive Date: 20081014
  Receipt Date: 20080916
  Transmission Date: 20090506
  Serious: Yes (Death)
  Sender: FDA-Public Use
  Company Number: JP-ASTRAZENECA-2008AP07068

PATIENT
  Age: 82 Year
  Sex: Male
  Weight: 43 kg

DRUGS (13)
  1. OMEPRAZOLE [Suspect]
     Indication: REFLUX OESOPHAGITIS
     Route: 048
     Dates: start: 20080430, end: 20080904
  2. BLOPRESS [Suspect]
     Indication: HYPERTENSION
     Route: 048
     Dates: start: 20080430, end: 20080904
  3. ARTIST [Suspect]
     Indication: CARDIAC FAILURE
     Route: 048
     Dates: start: 20080507, end: 20080904
  4. LASIX [Concomitant]
     Indication: CARDIAC FAILURE
     Route: 048
     Dates: start: 20060404, end: 20080904
  5. PURSENNID [Concomitant]
     Indication: CONSTIPATION
     Route: 048
     Dates: start: 20070328, end: 20080904
  6. ASPIRIN [Concomitant]
     Indication: ANGINA PECTORIS
     Route: 048
     Dates: start: 20080420, end: 20080904
  7. RENIVACE [Concomitant]
     Indication: HYPERTENSION
     Route: 048
     Dates: start: 20080430, end: 20080904
  8. SIGMART [Concomitant]
     Indication: ANGINA PECTORIS
     Route: 048
     Dates: start: 20080509, end: 20080904
  9. BASEN [Concomitant]
     Indication: DIABETES MELLITUS
     Route: 048
     Dates: start: 20080516, end: 20080904
  10. WARFARIN SODIUM [Concomitant]
     Indication: THROMBOSIS PROPHYLAXIS
     Route: 048
     Dates: end: 20080904
  11. MYSLEE [Concomitant]
     Indication: INSOMNIA
     Route: 048
     Dates: end: 20080904
  12. ITOROL [Concomitant]
     Indication: ANGINA PECTORIS
     Route: 048
     Dates: end: 20080508
  13. HANP [Concomitant]
     Dosage: DOSE UNKNOWN
     Route: 042
     Dates: start: 20080430, end: 20080507

REACTIONS (1)
  - RHABDOMYOLYSIS [None]
